FAERS Safety Report 15633896 (Version 1)
Quarter: 2018Q4

REPORT INFORMATION
  Report Type: Spontaneous
  Country: GB (occurrence: GB)
  Receive Date: 20181119
  Receipt Date: 20181119
  Transmission Date: 20190205
  Serious: Yes (Other)
  Sender: FDA-Public Use
  Company Number: GB-PFIZER INC-2018467469

PATIENT
  Age: 28 Year
  Sex: Male

DRUGS (8)
  1. MODAFINIL. [Suspect]
     Active Substance: MODAFINIL
     Indication: SUICIDAL IDEATION
  2. PROVIGIL [CHORIONIC GONADOTROPHIN] [Suspect]
     Active Substance: GONADOTROPHIN, CHORIONIC
     Indication: SUICIDAL IDEATION
  3. PROVIGIL [CHORIONIC GONADOTROPHIN] [Suspect]
     Active Substance: GONADOTROPHIN, CHORIONIC
     Indication: DEPRESSION
  4. LAMOTRIGINE. [Suspect]
     Active Substance: LAMOTRIGINE
     Dosage: UNK
     Route: 065
  5. PROVIGIL [CHORIONIC GONADOTROPHIN] [Suspect]
     Active Substance: GONADOTROPHIN, CHORIONIC
     Indication: ANXIETY
     Dosage: 400-800 MG PER DAY
     Route: 065
  6. MODAFINIL. [Suspect]
     Active Substance: MODAFINIL
     Indication: ANXIETY
  7. SERTRALINE HCL [Suspect]
     Active Substance: SERTRALINE HYDROCHLORIDE
     Dosage: UNK
     Route: 065
  8. MODAFINIL. [Suspect]
     Active Substance: MODAFINIL
     Indication: DEPRESSION
     Dosage: UNK

REACTIONS (5)
  - Anxiety [Unknown]
  - Somnolence [Unknown]
  - Condition aggravated [Unknown]
  - Suicidal ideation [Unknown]
  - Therapeutic response unexpected [Unknown]
